FAERS Safety Report 21530203 (Version 1)
Quarter: 2022Q4

REPORT INFORMATION
  Report Type: Spontaneous
  Country: US (occurrence: US)
  Receive Date: 20221031
  Receipt Date: 20221031
  Transmission Date: 20230113
  Serious: Yes (Hospitalization, Other)
  Sender: FDA-Public Use
  Company Number: US-BRISTOL-MYERS SQUIBB COMPANY-2022-128885

PATIENT
  Age: 63 Year
  Sex: Female

DRUGS (4)
  1. ELIQUIS [Suspect]
     Active Substance: APIXABAN
     Indication: Product used for unknown indication
     Route: 065
  2. LENVIMA [Suspect]
     Active Substance: LENVATINIB
     Indication: Endometrial cancer
     Dosage: DOSE: 14MG BY MOUTH DAILY
     Route: 048
     Dates: start: 20220930, end: 20221006
  3. LENVIMA [Suspect]
     Active Substance: LENVATINIB
     Dosage: DOSE: 10MG BY MOUTH DAILY
     Route: 048
     Dates: start: 20221013
  4. KEYTRUDA [Concomitant]
     Active Substance: PEMBROLIZUMAB
     Indication: Product used for unknown indication
     Route: 065

REACTIONS (1)
  - Hepatic haemorrhage [Unknown]

NARRATIVE: CASE EVENT DATE: 20221006
